FAERS Safety Report 9544039 (Version 2)
Quarter: 2014Q1

REPORT INFORMATION
  Report Type: Report from Study
  Country: DE (occurrence: DE)
  Receive Date: 20130923
  Receipt Date: 20140217
  Transmission Date: 20141002
  Serious: Yes (Hospitalization, Other)
  Sender: FDA-Public Use
  Company Number: PHHY2013DE103414

PATIENT
  Age: 35 Year
  Sex: Female

DRUGS (20)
  1. BASILIXIMAB [Suspect]
     Indication: RENAL TRANSPLANT
     Dosage: 20 ML, QD
     Route: 042
     Dates: start: 20110103, end: 20110927
  2. BASILIXIMAB [Suspect]
     Dosage: 5 MG, UNK
     Route: 042
     Dates: start: 20111105
  3. MYCOPHENOLATE MOFETIL [Suspect]
     Indication: RENAL TRANSPLANT
     Dosage: 1000 MG, BID
     Route: 048
     Dates: start: 20110103
  4. MYCOPHENOLATE MOFETIL [Suspect]
     Dosage: 500 MG, TID
     Route: 048
  5. TACROLIMUS [Suspect]
     Indication: RENAL TRANSPLANT
     Dosage: 4 MG, QD
     Route: 048
     Dates: start: 20110103
  6. TACROLIMUS [Suspect]
     Dosage: 5 MG, UNK
     Route: 048
     Dates: end: 20110927
  7. TACROLIMUS [Suspect]
     Dosage: UNK UKN, UNK
     Dates: start: 20111105
  8. PREDNISOLONE [Suspect]
     Indication: RENAL TRANSPLANT
     Dosage: 25 MG, QD
     Route: 048
     Dates: start: 20110103
  9. PREDNISOLONE [Suspect]
     Dosage: 10 MG, QD
     Route: 048
     Dates: start: 20110414
  10. PREDNISOLONE [Suspect]
     Dosage: 7.5 MG, UNK
  11. CERTICAN [Concomitant]
     Dosage: UNK UKN, UNK
  12. NEBIVOLOL [Concomitant]
     Dosage: UNK UKN, UNK
  13. AMLODIPIN [Concomitant]
     Dosage: UNK UKN, UNK
  14. PANTOPRAZOL [Concomitant]
     Dosage: 40 MG, DAILY
  15. COTRIM [Concomitant]
     Dosage: 1 DF, PER DAY
  16. FOLSAN [Concomitant]
     Dosage: 5 MG, QD
  17. NEORECORMON [Concomitant]
     Dosage: 4000 IU, ONCE IN 3 WEEKS
  18. FERROSANOL [Concomitant]
     Dosage: 1 DF, QD
  19. CHOLECALCIFEROL [Concomitant]
     Dosage: 1 DF, QD
  20. NATRIUM HYDROCARBONAT [Concomitant]
     Dosage: 2 DF, PER DAY

REACTIONS (6)
  - Urinary tract disorder [Unknown]
  - Febrile infection [Recovered/Resolved]
  - Kidney transplant rejection [Recovering/Resolving]
  - Renal impairment [Recovering/Resolving]
  - Splenomegaly [Unknown]
  - Ovarian cyst [Unknown]
